FAERS Safety Report 7757715-7 (Version None)
Quarter: 2011Q3

REPORT INFORMATION
  Report Type: 
  Country: None (occurrence: None)
  Receive Date: 20110916
  Receipt Date: 20110907
  Transmission Date: 20111222
  Serious: Yes (Hospitalization)
  Sender: FDA-Public Use
  Company Number: US-ASTRAZENECA-2011SE53702

PATIENT
  Age: 58 Year
  Sex: Female

DRUGS (5)
  1. QUETIAPINE [Suspect]
     Route: 048
     Dates: end: 20090901
  2. COGENTIN [Concomitant]
     Dates: start: 20081122
  3. ATIVAN [Concomitant]
     Dates: start: 20081208
  4. QUETIAPINE [Suspect]
     Indication: SCHIZOPHRENIA
     Route: 048
     Dates: start: 20090106
  5. IBUPROFEN [Concomitant]
     Dates: start: 20090512

REACTIONS (1)
  - SCHIZOPHRENIA [None]
